FAERS Safety Report 14638764 (Version 1)
Quarter: 2018Q1

REPORT INFORMATION
  Report Type: Spontaneous
  Country: FR (occurrence: FR)
  Receive Date: 20180315
  Receipt Date: 20180315
  Transmission Date: 20180509
  Serious: Yes (Other)
  Sender: FDA-Public Use
  Company Number: FR-MERCK KGAA-2043743

PATIENT
  Age: 66 Year
  Sex: Female

DRUGS (2)
  1. CRESTOR [Concomitant]
     Active Substance: ROSUVASTATIN CALCIUM
  2. NOVOTHYROX [Suspect]
     Active Substance: LEVOTHYROXINE SODIUM
     Indication: PRODUCT USED FOR UNKNOWN INDICATION

REACTIONS (30)
  - Dehydration [None]
  - Insomnia [None]
  - Headache [None]
  - Dizziness [Recovered/Resolved]
  - Malaise [Recovered/Resolved]
  - Ocular discomfort [None]
  - Abdominal pain upper [None]
  - Irritability [None]
  - Loss of libido [None]
  - Hyperhidrosis [None]
  - Abdominal discomfort [None]
  - Loss of personal independence in daily activities [None]
  - Abdominal pain [None]
  - Affect lability [None]
  - Urinary incontinence [Recovered/Resolved]
  - Amnesia [None]
  - Skin disorder [None]
  - Skin wrinkling [None]
  - Balance disorder [None]
  - Diarrhoea [Recovered/Resolved]
  - Abdominal distension [None]
  - Emotional distress [None]
  - Disturbance in attention [None]
  - Defaecation disorder [None]
  - Fatigue [None]
  - Pain in extremity [None]
  - Gastrointestinal disorder [None]
  - Alopecia [None]
  - Swelling [None]
  - Aggression [None]
